FAERS Safety Report 6652159-3 (Version None)
Quarter: 2010Q1

REPORT INFORMATION
  Report Type: 
  Country: None (occurrence: None)
  Receive Date: 20100323
  Receipt Date: 20100316
  Transmission Date: 20100710
  Serious: Yes (Hospitalization)
  Sender: FDA-Public Use
  Company Number: 1000012516

PATIENT
  Age: 67 Year
  Sex: Female

DRUGS (4)
  1. ARMOUR THYROID              (THYROID ) (TABLETS) [Suspect]
     Indication: HYPOTHYROIDISM
     Dosage: 90 MG, (90 MG,1 IN 1 D), ORAL
     Route: 048
     Dates: start: 19850101, end: 20100310
  2. CALCIUM [Concomitant]
  3. MAGNESIUM [Concomitant]
  4. VITAMIN D [Concomitant]

REACTIONS (5)
  - ATRIAL FIBRILLATION [None]
  - BLOOD THYROID STIMULATING HORMONE ABNORMAL [None]
  - DYSPNOEA [None]
  - FLUSHING [None]
  - HEADACHE [None]
